FAERS Safety Report 10582537 (Version 1)
Quarter: 2014Q4

REPORT INFORMATION
  Report Type: Spontaneous
  Country: None (occurrence: US)
  Receive Date: 20141113
  Receipt Date: 20141113
  Transmission Date: 20150529
  Serious: No
  Sender: FDA-Public Use
  Company Number: US-TEVA-521794USA

PATIENT
  Sex: Female
  Weight: 70.37 kg

DRUGS (1)
  1. PARAGARD T380A [Suspect]
     Active Substance: COPPER
     Indication: CONTRACEPTION
     Route: 015
     Dates: start: 20130328

REACTIONS (3)
  - Allergy to metals [Unknown]
  - Eczema [Unknown]
  - Alopecia [Unknown]
